FAERS Safety Report 4832637-X (Version None)
Quarter: 2005Q4

REPORT INFORMATION
  Report Type: 
  Country: None (occurrence: None)
  Receive Date: 20051121
  Receipt Date: 20050712
  Transmission Date: 20060501
  Serious: Yes (Other)
  Sender: FDA-Public Use
  Company Number: FR-NOVOPROD-245522

PATIENT
  Age: 52 Year
  Sex: Male
  Weight: 74 kg

DRUGS (6)
  1. NOVOMIX 30 FLEXPEN [Suspect]
     Indication: DIABETES MELLITUS
     Dosage: 30 IU, BID
     Route: 058
     Dates: start: 20040101, end: 20050101
  2. ACTRAPID [Suspect]
     Indication: DIABETES MELLITUS
     Dates: start: 20040101, end: 20050101
  3. HYPERIUM [Concomitant]
     Dates: start: 20040101
  4. TRIATEC [Concomitant]
     Dates: start: 20040101
  5. AMLOR [Concomitant]
     Dates: start: 20040101
  6. TAHOR [Concomitant]
     Dates: start: 20040101

REACTIONS (3)
  - HYPOTENSION [None]
  - THROAT IRRITATION [None]
  - URTICARIA [None]
